FAERS Safety Report 9401874 (Version 1)
Quarter: 2013Q3

REPORT INFORMATION
  Report Type: Spontaneous
  Country: FR (occurrence: FR)
  Receive Date: 20130716
  Receipt Date: 20130716
  Transmission Date: 20140515
  Serious: Yes (Death)
  Sender: FDA-Public Use
  Company Number: FR-JNJFOC-20130705317

PATIENT
  Sex: 0

DRUGS (2)
  1. GYNO PEVARYL [Suspect]
     Indication: FOETAL EXPOSURE DURING PREGNANCY
     Route: 015
  2. GENTOSYL [Suspect]
     Indication: FOETAL EXPOSURE DURING PREGNANCY
     Dosage: 5 INJECTIONS IN TOTAL
     Route: 015
     Dates: start: 20130507, end: 20130511

REACTIONS (5)
  - Renal aplasia [Fatal]
  - Oligohydramnios [Fatal]
  - Foetal exposure during pregnancy [Fatal]
  - Maternal drugs affecting foetus [None]
  - Abortion induced [None]
